FAERS Safety Report 15353724 (Version 2)
Quarter: 2018Q4

REPORT INFORMATION
  Report Type: Spontaneous
  Country: FR (occurrence: FR)
  Receive Date: 20180905
  Receipt Date: 20181217
  Transmission Date: 20190204
  Serious: No
  Sender: FDA-Public Use
  Company Number: FR-JAZZ-2018-FR-008820

PATIENT

DRUGS (9)
  1. CEFEPIME [Concomitant]
     Active Substance: CEFEPIME HYDROCHLORIDE
     Indication: ANTIBIOTIC THERAPY
     Dosage: 6 G, UNK
     Route: 042
     Dates: start: 20180521
  2. VYXEOS [Suspect]
     Active Substance: CYTARABINE\DAUNORUBICIN
     Indication: ACUTE MYELOID LEUKAEMIA
     Dosage: 44 MG/M2, UNK
     Route: 042
     Dates: start: 20180518
  3. TAZOCILLINE [Concomitant]
     Active Substance: PIPERACILLIN SODIUM\TAZOBACTAM SODIUM
     Indication: ANTIBIOTIC THERAPY
     Dosage: 12 G, UNK
     Route: 042
     Dates: start: 20180517, end: 20180521
  4. VALACICLOVIR [Concomitant]
     Active Substance: VALACYCLOVIR HYDROCHLORIDE
     Indication: ANTIVIRAL PROPHYLAXIS
     Dosage: 1000 MG, UNK
     Dates: start: 20180522
  5. ONDANSETRON [Concomitant]
     Active Substance: ONDANSETRON
     Indication: VOMITING
     Dosage: 16 MG, UNK
     Route: 042
     Dates: start: 20180518, end: 20180522
  6. APREPITANT. [Concomitant]
     Active Substance: APREPITANT
     Indication: VOMITING
     Dosage: 80 MG, UNK
     Route: 048
     Dates: start: 20180519, end: 20180524
  7. ZYVOXID [Concomitant]
     Active Substance: LINEZOLID
     Indication: ANTIBIOTIC THERAPY
     Dosage: 1200 MG, UNK
     Route: 048
     Dates: start: 20180523
  8. PANTOPRAZOLE [Concomitant]
     Active Substance: PANTOPRAZOLE
     Indication: PRODUCT USED FOR UNKNOWN INDICATION
     Dosage: 40 MG, UNK
     Route: 048
     Dates: start: 20180518
  9. VORICONAZOLE. [Concomitant]
     Active Substance: VORICONAZOLE
     Indication: ANTIFUNGAL PROPHYLAXIS
     Dosage: 400 MG, UNK
     Route: 048
     Dates: start: 20180513

REACTIONS (2)
  - Hyperthermia [Recovered/Resolved]
  - Alopecia [Unknown]

NARRATIVE: CASE EVENT DATE: 20180521
